FAERS Safety Report 11563738 (Version 1)
Quarter: 2015Q3

REPORT INFORMATION
  Report Type: Spontaneous
  Country: US (occurrence: US)
  Receive Date: 20150928
  Receipt Date: 20150928
  Transmission Date: 20151125
  Serious: Yes (Other)
  Sender: FDA-Public Use
  Company Number: US-SMITH AND NEPHEW, INC-2015SMT00259

PATIENT
  Age: 44 Year
  Sex: Male
  Weight: 136.5 kg

DRUGS (21)
  1. DOXYCYCLINE HYCLATE DELAYED RELEASE TABLET [Concomitant]
     Dosage: 100 MG, UNK
  2. IBUPROFEN. [Concomitant]
     Active Substance: IBUPROFEN
     Dosage: 800 MG, UNK
  3. METOPROLOL TARTRATE. [Concomitant]
     Active Substance: METOPROLOL TARTRATE
     Dosage: 25 MG, UNK
  4. EPIVIR [Concomitant]
     Active Substance: LAMIVUDINE
  5. CLINDAMYCIN HYDROCHLORIDE. [Concomitant]
     Active Substance: CLINDAMYCIN HYDROCHLORIDE
     Dosage: 300 MG, UNK
  6. VALTREX [Concomitant]
     Active Substance: VALACYCLOVIR HYDROCHLORIDE
     Dosage: 1 G, UNK
  7. REGRANEX [Suspect]
     Active Substance: BECAPLERMIN
     Indication: DIABETIC ULCER
     Dosage: UNK UNK, 1X/DAY
     Route: 061
     Dates: start: 201507
  8. FISH OIL [Concomitant]
     Active Substance: FISH OIL
     Dosage: UNK
  9. BACTRIM DS [Concomitant]
     Active Substance: SULFAMETHOXAZOLE\TRIMETHOPRIM
  10. GLYBURIDE MICRONIZED [Concomitant]
     Dosage: 3 MG, UNK
  11. ACARBOSE. [Concomitant]
     Active Substance: ACARBOSE
     Dosage: 25 MG, UNK
  12. ATROPINE SULFATE AND DIPHENOXYLATE HYDROCHLORIDE [Concomitant]
  13. BETAMETHASONE AND CLOTRIMAZOLE [Concomitant]
  14. LOVAZA ETHYL ESTERS [Concomitant]
     Dosage: 1000 MG, UNK
  15. PRINIVIL [Concomitant]
     Active Substance: LISINOPRIL
     Dosage: 10 MG, UNK
  16. UNSPECIFIED ORAL DIABETES PILLS [Concomitant]
  17. KALETRA [Concomitant]
     Active Substance: LOPINAVIR\RITONAVIR
  18. PRAVASTATIN SODIUM. [Concomitant]
     Active Substance: PRAVASTATIN SODIUM
     Dosage: 40 MG, UNK
  19. LOPID [Concomitant]
     Active Substance: GEMFIBROZIL
     Dosage: 600 MG, UNK
  20. INSULIN [Concomitant]
     Active Substance: INSULIN NOS
     Dosage: UNK
  21. EPZICOM [Concomitant]
     Active Substance: ABACAVIR SULFATE\LAMIVUDINE

REACTIONS (9)
  - Onychomycosis [Unknown]
  - Hypoaesthesia [Unknown]
  - Osteomyelitis [Not Recovered/Not Resolved]
  - Application site infection [Unknown]
  - Wound complication [Unknown]
  - Paraesthesia [Unknown]
  - Skin ulcer [Unknown]
  - Application site swelling [Not Recovered/Not Resolved]
  - Diabetic neuropathy [Unknown]

NARRATIVE: CASE EVENT DATE: 201507
